FAERS Safety Report 9443751 (Version 2)
Quarter: 2013Q3

REPORT INFORMATION
  Report Type: Report from Study
  Country: JP (occurrence: JP)
  Receive Date: 20130806
  Receipt Date: 20130827
  Transmission Date: 20140515
  Serious: Yes (Hospitalization, Other)
  Sender: FDA-Public Use
  Company Number: JP-OTSUKA-JP-2013-12664

PATIENT
  Age: 76 Year
  Sex: Female

DRUGS (7)
  1. SAMSCA [Suspect]
     Indication: FLUID RETENTION
     Dosage: 7.5 MG MILLIGRAM(S), QAM
     Route: 048
     Dates: start: 20130623
  2. LASIX [Concomitant]
     Indication: CARDIAC FAILURE
     Dosage: 40 MG MILLIGRAM(S), DAILY DOSE
     Route: 042
     Dates: end: 20130704
  3. THYRADIN S [Concomitant]
     Dosage: 50 MCG, DAILY DOSE
     Route: 048
  4. SOTACOR [Concomitant]
     Indication: PROPHYLAXIS
     Dosage: 80 MG MILLIGRAM(S), DAILY DOSE
     Route: 048
     Dates: start: 20130625
  5. WARFARIN POTASSIUM [Concomitant]
     Indication: PROPHYLAXIS
     Dosage: 2.5 MG MILLIGRAM(S), DAILY DOSE
     Route: 048
     Dates: start: 20130625
  6. TAKEPRON [Concomitant]
     Indication: PROPHYLAXIS
     Dosage: 15 MG MILLIGRAM(S), DAILY DOSE
     Route: 048
     Dates: start: 20130625
  7. AMIODARONE [Concomitant]
     Indication: PROPHYLAXIS
     Dosage: 200 MG MILLIGRAM(S), DAILY DOSE
     Route: 048
     Dates: start: 20130628

REACTIONS (4)
  - Hepatic function abnormal [Not Recovered/Not Resolved]
  - Ventricular fibrillation [Recovered/Resolved]
  - Respiratory tract infection [Recovering/Resolving]
  - White blood cell count increased [Not Recovered/Not Resolved]
